FAERS Safety Report 5487310-4 (Version None)
Quarter: 2007Q4

REPORT INFORMATION
  Report Type: 
  Country: None (occurrence: None)
  Receive Date: 20071016
  Receipt Date: 20070920
  Transmission Date: 20080405
  Serious: Yes (Life-Threatening)
  Sender: FDA-Public Use
  Company Number: JP-MERCK-0708USA00286

PATIENT
  Age: 70 Year
  Sex: Female

DRUGS (7)
  1. FAMOTIDINE [Suspect]
     Route: 048
  2. LASIX [Concomitant]
     Route: 065
  3. ALDACTONE [Concomitant]
     Route: 065
  4. WARFARIN [Concomitant]
     Route: 065
  5. ZYLORIC [Concomitant]
     Route: 065
  6. OLMETEC [Concomitant]
     Route: 065
  7. DIART [Concomitant]
     Route: 065

REACTIONS (1)
  - ELECTROCARDIOGRAM QT PROLONGED [None]
